FAERS Safety Report 6863304-9 (Version None)
Quarter: 2010Q3

REPORT INFORMATION
  Report Type: 
  Country: None (occurrence: None)
  Receive Date: 20100721
  Receipt Date: 20100711
  Transmission Date: 20110219
  Serious: Yes (Other)
  Sender: FDA-Public Use
  Company Number: US-JNJFOC-20100704825

PATIENT
  Sex: Female
  Weight: 56.7 kg

DRUGS (2)
  1. ORTHO EVRA [Suspect]
     Indication: MENORRHAGIA
     Route: 062
  2. OXYCODONE [Concomitant]
     Indication: ANALGESIC THERAPY
     Route: 065

REACTIONS (7)
  - DRUG PRESCRIBING ERROR [None]
  - FIBROMYALGIA [None]
  - INAPPROPRIATE SCHEDULE OF DRUG ADMINISTRATION [None]
  - MUSCLE SPASMS [None]
  - NAUSEA [None]
  - OFF LABEL USE [None]
  - VAGINAL HAEMORRHAGE [None]
